FAERS Safety Report 17221355 (Version 1)
Quarter: 2020Q1

REPORT INFORMATION
  Report Type: Spontaneous
  Country: FR (occurrence: FR)
  Receive Date: 20200101
  Receipt Date: 20200101
  Transmission Date: 20200409
  Serious: Yes (Death, Life-Threatening, Hospitalization)
  Sender: FDA-Public Use
  Company Number: FR-BAXTER-2019BAX026120

PATIENT
  Age: 62 Year
  Sex: Female

DRUGS (3)
  1. EPIRUBICIN MYLAN [Suspect]
     Active Substance: EPIRUBICIN
     Indication: BREAST CANCER
     Route: 041
     Dates: start: 201504, end: 201506
  2. PACLITAXEL ARROW [Suspect]
     Active Substance: PACLITAXEL
     Indication: BREAST CANCER
     Dosage: CONCENTRATED SOLUTION INFUSION
     Route: 041
     Dates: start: 201506, end: 201508
  3. ENDOXAN 1000 MG, POUDRE POUR SOLUTIONINJECTABLE [Suspect]
     Active Substance: CYCLOPHOSPHAMIDE
     Indication: BREAST CANCER
     Route: 041
     Dates: start: 201504, end: 201506

REACTIONS (1)
  - Acute myeloid leukaemia [Fatal]

NARRATIVE: CASE EVENT DATE: 201704
